FAERS Safety Report 6524845-7 (Version None)
Quarter: 2010Q1

REPORT INFORMATION
  Report Type: 
  Country: None (occurrence: None)
  Receive Date: 20100104
  Receipt Date: 20091204
  Transmission Date: 20100710
  Serious: No
  Sender: FDA-Public Use
  Company Number: US-BAYER-200942278NA

PATIENT
  Age: 27 Year
  Sex: Male

DRUGS (3)
  1. AVELOX [Suspect]
     Indication: PNEUMONIA
     Dosage: TOTAL DAILY DOSE: 400 MG  UNIT DOSE: 400 MG
     Dates: start: 20091201
  2. MUCINEX D [Concomitant]
  3. PREDNISONE [Concomitant]

REACTIONS (1)
  - MEDICATION RESIDUE [None]
